FAERS Safety Report 6403437-4 (Version None)
Quarter: 2009Q4

REPORT INFORMATION
  Report Type: 
  Country: None (occurrence: None)
  Receive Date: 20091016
  Receipt Date: 20091015
  Transmission Date: 20100525
  Serious: Yes (Hospitalization, Other)
  Sender: FDA-Public Use
  Company Number: FR-BRISTOL-MYERS SQUIBB COMPANY-14817969

PATIENT
  Age: 59 Year
  Sex: Male

DRUGS (1)
  1. COUMADIN [Suspect]
     Indication: ANTIPHOSPHOLIPID SYNDROME
     Dates: start: 19970101, end: 20081205

REACTIONS (4)
  - FALL [None]
  - LIMB INJURY [None]
  - MUSCLE HAEMORRHAGE [None]
  - NERVE COMPRESSION [None]
